FAERS Safety Report 9071011 (Version 1)
Quarter: 2013Q1

REPORT INFORMATION
  Report Type: Spontaneous
  Country: US (occurrence: US)
  Receive Date: 20130206
  Receipt Date: 20130206
  Transmission Date: 20140127
  Serious: No
  Sender: FDA-Public Use
  Company Number: US-ALLERGAN-1207734US

PATIENT
  Age: 84 Year
  Sex: Female

DRUGS (3)
  1. RESTASIS? [Suspect]
     Indication: DRY EYE
     Dosage: 2 GTT, BID
     Route: 047
     Dates: start: 20120314
  2. VERAPAMIL [Concomitant]
     Indication: HYPERTENSION
     Dosage: 240 MG, UNK
  3. LOZOL [Concomitant]
     Indication: DIURETIC THERAPY
     Dosage: 1.25 MG, UNK

REACTIONS (2)
  - Middle insomnia [Recovered/Resolved]
  - Eye pain [Recovered/Resolved]
